FAERS Safety Report 8375204-6 (Version None)
Quarter: 2012Q2

REPORT INFORMATION
  Report Type: 
  Country: None (occurrence: None)
  Receive Date: 20120522
  Receipt Date: 20120508
  Transmission Date: 20120825
  Serious: Yes (Hospitalization, Other)
  Sender: FDA-Public Use
  Company Number: BR-AMGEN-BRASP2012029793

PATIENT
  Age: 65 Year
  Sex: Male
  Weight: 98 kg

DRUGS (3)
  1. ENBREL [Suspect]
     Dosage: UNK
     Route: 058
     Dates: start: 20111001
  2. TORLOS [Concomitant]
     Dosage: UNK
  3. ENBREL [Suspect]
     Indication: RHEUMATOID ARTHRITIS
     Dosage: 50 MG, ONCE WEEKLY
     Route: 058
     Dates: start: 20110103, end: 20110901

REACTIONS (2)
  - STAPHYLOCOCCAL BACTERAEMIA [None]
  - JOINT PROSTHESIS USER [None]
